FAERS Safety Report 7520840-X (Version None)
Quarter: 2011Q2

REPORT INFORMATION
  Report Type: 
  Country: None (occurrence: None)
  Receive Date: 20110603
  Receipt Date: 20100706
  Transmission Date: 20111010
  Serious: Yes (Death)
  Sender: FDA-Public Use
  Company Number: US-BAYER-201020430NA

PATIENT
  Age: 38 Year
  Sex: Female
  Weight: 77.273 kg

DRUGS (8)
  1. YAZ [Suspect]
     Indication: PREMENSTRUAL SYNDROME
  2. PROVENTIL-HFA [Concomitant]
     Dosage: 1-2 PUFFS EVERY 4-6 HOURS AS NEEDED
     Route: 055
  3. CITALOPRAM HYDROBROMIDE [Concomitant]
     Indication: DEPRESSION
     Route: 065
  4. VALTREX [Concomitant]
     Indication: ORAL HERPES
     Route: 065
  5. LEXAPRO [Concomitant]
     Route: 065
  6. YAZ [Suspect]
     Indication: CONTRACEPTION
     Dosage: AS USED DOSE: UNK
     Route: 048
     Dates: start: 20070928, end: 20080418
  7. CLARINEX [Concomitant]
     Route: 065
  8. ADDERALL 10 [Concomitant]
     Route: 065

REACTIONS (4)
  - CHEST PAIN [None]
  - DEEP VEIN THROMBOSIS [None]
  - PULMONARY EMBOLISM [None]
  - DYSPNOEA [None]
